FAERS Safety Report 9788014 (Version 1)
Quarter: 2013Q4

REPORT INFORMATION
  Report Type: Spontaneous
  Country: US (occurrence: None)
  Receive Date: 20131227
  Receipt Date: 20131227
  Transmission Date: 20140711
  Serious: No
  Sender: FDA-Public Use
  Company Number: None

PATIENT
  Age: 63 Year
  Sex: Male
  Weight: 68.04 kg

DRUGS (2)
  1. TECFIDERA 240MG BIOGEN IDEC [Suspect]
     Dosage: 1 CAPSULE BID ORAL
     Route: 048
     Dates: start: 20131030, end: 20131226
  2. MULTIVITAMIN [Concomitant]

REACTIONS (2)
  - Abdominal discomfort [None]
  - Flushing [None]
